FAERS Safety Report 4424390-9 (Version None)
Quarter: 2004Q3

REPORT INFORMATION
  Report Type: 
  Country: None (occurrence: None)
  Receive Date: 20040812
  Receipt Date: 20040802
  Transmission Date: 20050211
  Serious: Yes (Hospitalization, Other)
  Sender: FDA-Public Use
  Company Number: FR-JNJFOC-20040800515

PATIENT
  Age: 76 Year
  Sex: Female

DRUGS (7)
  1. RISPERDAL [Suspect]
     Indication: DRUG USE FOR UNKNOWN INDICATION
     Route: 049
  2. TIAPRIDAL [Suspect]
     Indication: DRUG USE FOR UNKNOWN INDICATION
     Dosage: 20 DROPS
     Route: 049
     Dates: end: 20040121
  3. ARICEPT [Concomitant]
  4. STILNOX [Concomitant]
     Dates: end: 20040121
  5. ZOLOFT [Concomitant]
  6. CACIT VITAMINE D3 [Concomitant]
  7. CACIT VITAMINE D3 [Concomitant]

REACTIONS (3)
  - EXTRAPYRAMIDAL DISORDER [None]
  - FALL [None]
  - OVERDOSE [None]
